FAERS Safety Report 10378713 (Version 1)
Quarter: 2014Q3

REPORT INFORMATION
  Report Type: Spontaneous
  Country: US (occurrence: US)
  Receive Date: 20140812
  Receipt Date: 20140812
  Transmission Date: 20150326
  Serious: Yes (Hospitalization)
  Sender: FDA-Public Use
  Company Number: US-BAYER-2014-119901

PATIENT
  Age: 28 Year
  Sex: Female

DRUGS (1)
  1. MIRENA [Suspect]
     Active Substance: LEVONORGESTREL
     Dosage: 20 MCG/24HR, CONT
     Route: 015
     Dates: start: 20100104, end: 201208

REACTIONS (6)
  - Medical device complication [None]
  - Abdominal pain [None]
  - Emotional distress [None]
  - Uterine perforation [None]
  - Injury [None]
  - Pelvic pain [None]

NARRATIVE: CASE EVENT DATE: 201207
